FAERS Safety Report 8234610-0 (Version None)
Quarter: 2012Q1

REPORT INFORMATION
  Report Type: 
  Country: None (occurrence: None)
  Receive Date: 20120326
  Receipt Date: 20120319
  Transmission Date: 20120608
  Serious: Yes (Other)
  Sender: FDA-Public Use
  Company Number: US-AMGEN-USASP2012017624

PATIENT
  Age: 51 Year
  Sex: Female

DRUGS (1)
  1. ENBREL [Suspect]
     Indication: ANKYLOSING SPONDYLITIS
     Dosage: 50 MG, QWK
     Dates: start: 20000101, end: 20111001

REACTIONS (6)
  - MUSCULOSKELETAL PAIN [None]
  - SUPRAVENTRICULAR TACHYCARDIA [None]
  - OPTIC NEURITIS [None]
  - ARTHRALGIA [None]
  - NECK PAIN [None]
  - WALKING AID USER [None]
